FAERS Safety Report 13052817 (Version 1)
Quarter: 2016Q4

REPORT INFORMATION
  Report Type: Spontaneous
  Country: FR (occurrence: FR)
  Receive Date: 20161221
  Receipt Date: 20161221
  Transmission Date: 20170207
  Serious: Yes (Hospitalization)
  Sender: FDA-Public Use
  Company Number: FR-CONCORDIA PHARMACEUTICALS INC.-GSH201612-006498

PATIENT
  Age: 65 Year
  Sex: Male

DRUGS (4)
  1. PLAQUENIL [Suspect]
     Active Substance: HYDROXYCHLOROQUINE SULFATE
     Indication: RHEUMATOID ARTHRITIS
     Route: 048
     Dates: start: 20161107, end: 20161118
  2. OPDIVO [Suspect]
     Active Substance: NIVOLUMAB
     Indication: BRONCHIAL CARCINOMA
     Route: 065
     Dates: start: 20161013, end: 20161110
  3. VOLTARENE [Suspect]
     Active Substance: DICLOFENAC SODIUM
     Indication: RHEUMATOID ARTHRITIS
     Route: 048
     Dates: start: 20161107, end: 20161118
  4. SALAZOPYRINE [Suspect]
     Active Substance: SULFASALAZINE
     Indication: RHEUMATOID ARTHRITIS
     Route: 048
     Dates: start: 20161107, end: 20161118

REACTIONS (1)
  - Drug reaction with eosinophilia and systemic symptoms [Recovering/Resolving]

NARRATIVE: CASE EVENT DATE: 20161114
